FAERS Safety Report 13698178 (Version 1)
Quarter: 2017Q2

REPORT INFORMATION
  Report Type: Spontaneous
  Country: US (occurrence: US)
  Receive Date: 20170628
  Receipt Date: 20170628
  Transmission Date: 20170830
  Serious: Yes (Hospitalization, Other)
  Sender: FDA-Public Use
  Company Number: US-PFIZER INC-2017279807

PATIENT
  Age: 53 Year
  Sex: Female

DRUGS (1)
  1. IBRANCE [Suspect]
     Active Substance: PALBOCICLIB
     Indication: BREAST CANCER
     Dosage: 125 MG, CYCLIC (DAY 1-21 Q 28 DAYS)
     Route: 048
     Dates: start: 20170427

REACTIONS (7)
  - Constipation [Unknown]
  - Cough [Unknown]
  - Pulmonary oedema [Unknown]
  - Neoplasm progression [Unknown]
  - Hypersensitivity [Unknown]
  - Back pain [Unknown]
  - Pneumonia [Unknown]
